FAERS Safety Report 14739605 (Version 1)
Quarter: 2018Q2

REPORT INFORMATION
  Report Type: Spontaneous
  Country: FR (occurrence: FR)
  Receive Date: 20180410
  Receipt Date: 20180410
  Transmission Date: 20180711
  Serious: Yes (Other)
  Sender: FDA-Public Use
  Company Number: FR-BIOGEN-2018BI00550033

PATIENT
  Age: 28 Year
  Sex: Female
  Weight: 77 kg

DRUGS (1)
  1. TECFIDERA [Suspect]
     Active Substance: DIMETHYL FUMARATE
     Indication: MULTIPLE SCLEROSIS
     Dosage: MAINTENANCE DOSE
     Route: 048
     Dates: start: 2015

REACTIONS (4)
  - Noninfective gingivitis [Not Recovered/Not Resolved]
  - Gingivitis [Not Recovered/Not Resolved]
  - Gingival oedema [Not Recovered/Not Resolved]
  - Gingival bleeding [Not Recovered/Not Resolved]

NARRATIVE: CASE EVENT DATE: 201708
